FAERS Safety Report 11217931 (Version 1)
Quarter: 2015Q2

REPORT INFORMATION
  Report Type: Spontaneous
  Country: None (occurrence: None)
  Receive Date: 20150624
  Receipt Date: 20150624
  Transmission Date: 20150821
  Serious: Yes (Life-Threatening, Hospitalization)
  Sender: FDA-Public Use
  Company Number: None

PATIENT
  Age: 84 Year
  Sex: Male
  Weight: 87.09 kg

DRUGS (1)
  1. MULTIHANCE [Suspect]
     Active Substance: GADOBENATE DIMEGLUMINE
     Indication: COMPUTERISED TOMOGRAM
     Route: 042

REACTIONS (4)
  - Contrast media reaction [None]
  - Dyspnoea [None]
  - Unresponsive to stimuli [None]
  - Cardio-respiratory arrest [None]

NARRATIVE: CASE EVENT DATE: 20150623
